FAERS Safety Report 17831126 (Version 2)
Quarter: 2020Q2

REPORT INFORMATION
  Report Type: Spontaneous
  Country: US (occurrence: US)
  Receive Date: 20200527
  Receipt Date: 20200611
  Transmission Date: 20200714
  Serious: Yes (Death, Hospitalization, Other)
  Sender: FDA-Public Use
  Company Number: US-GILEAD-2020-0468797

PATIENT
  Age: 7 Decade
  Sex: Male

DRUGS (5)
  1. RANEXA [Suspect]
     Active Substance: RANOLAZINE
     Dosage: 30 DOSAGE FORM, ONCE
     Route: 048
  2. RANEXA [Suspect]
     Active Substance: RANOLAZINE
     Indication: ANGINA PECTORIS
     Dosage: UNK
     Route: 048
  3. ATORVASTATIN [Concomitant]
     Active Substance: ATORVASTATIN
  4. CLOPIDOGREL [Concomitant]
     Active Substance: CLOPIDOGREL BISULFATE
  5. CLONAZEPAM. [Concomitant]
     Active Substance: CLONAZEPAM

REACTIONS (8)
  - Electrocardiogram QT prolonged [Fatal]
  - Ventricular tachycardia [Not Recovered/Not Resolved]
  - Seizure [Fatal]
  - Atrioventricular block first degree [Unknown]
  - Cardiac arrest [Not Recovered/Not Resolved]
  - Mental status changes [Unknown]
  - Intentional overdose [Fatal]
  - Cardiac arrest [Fatal]
